FAERS Safety Report 21015902 (Version 1)
Quarter: 2022Q2

REPORT INFORMATION
  Report Type: Spontaneous
  Country: IN (occurrence: IN)
  Receive Date: 20220628
  Receipt Date: 20220628
  Transmission Date: 20220721
  Serious: Yes (Hospitalization)
  Sender: FDA-Public Use
  Company Number: IN-Axellia-004363

PATIENT
  Age: 43 Year
  Sex: Female

DRUGS (3)
  1. COLISTIMETHATE SODIUM [Suspect]
     Active Substance: COLISTIMETHATE SODIUM
     Indication: Septic shock
     Dosage: 3 MILLION UNITS (MU) TDS
     Route: 042
  2. MEROPENEM [Concomitant]
     Active Substance: MEROPENEM
     Indication: Septic shock
  3. TARGOCID [Concomitant]
     Active Substance: TEICOPLANIN
     Indication: Septic shock

REACTIONS (1)
  - Bartter^s syndrome [Recovered/Resolved]
